FAERS Safety Report 19321345 (Version 1)
Quarter: 2021Q2

REPORT INFORMATION
  Report Type: Report from Study
  Country: JP (occurrence: JP)
  Receive Date: 20210527
  Receipt Date: 20210527
  Transmission Date: 20210717
  Serious: Yes (Hospitalization, Disabling)
  Sender: FDA-Public Use
  Company Number: JP-EMD SERONO-9206819

PATIENT
  Age: 65 Year
  Sex: Male
  Weight: 76 kg

DRUGS (8)
  1. INLYTA [Suspect]
     Active Substance: AXITINIB
     Dates: start: 20210401
  2. DIPHENHYDRAMINE. [Concomitant]
     Active Substance: DIPHENHYDRAMINE
     Indication: PREMEDICATION
     Route: 041
     Dates: start: 20201210, end: 20201210
  3. INLYTA [Suspect]
     Active Substance: AXITINIB
     Dates: start: 20201224, end: 20210330
  4. ACETAMINOPHEN. [Concomitant]
     Active Substance: ACETAMINOPHEN
     Indication: PREMEDICATION
     Route: 048
     Dates: start: 20201210, end: 20201210
  5. LATANOPROST. [Concomitant]
     Active Substance: LATANOPROST
     Indication: GLAUCOMA
  6. BRIMONIDINE [Concomitant]
     Active Substance: BRIMONIDINE TARTRATE
     Indication: GLAUCOMA
  7. BAVENCIO [Suspect]
     Active Substance: AVELUMAB
     Indication: METASTATIC RENAL CELL CARCINOMA
     Dosage: 250ML/HR.
     Route: 041
     Dates: start: 20201210, end: 20201210
  8. INLYTA [Suspect]
     Active Substance: AXITINIB
     Indication: METASTATIC RENAL CELL CARCINOMA
     Dates: start: 20201210, end: 20201210

REACTIONS (7)
  - Face oedema [Recovered/Resolved]
  - Hypotension [Recovered/Resolved]
  - Dyspnoea [Recovered/Resolved]
  - Pyrexia [Recovered/Resolved]
  - Chills [Recovered/Resolved]
  - Glaucoma [Not Recovered/Not Resolved]
  - Oxygen saturation decreased [Recovered/Resolved]

NARRATIVE: CASE EVENT DATE: 20201210
